FAERS Safety Report 11873229 (Version 2)
Quarter: 2016Q1

REPORT INFORMATION
  Report Type: Spontaneous
  Country: BR (occurrence: BR)
  Receive Date: 20151228
  Receipt Date: 20160224
  Transmission Date: 20160526
  Serious: Yes (Other)
  Sender: FDA-Public Use
  Company Number: BR-ABBVIE-15P-020-1527077-00

PATIENT
  Sex: Female
  Weight: 62 kg

DRUGS (8)
  1. DEPAKOTE [Suspect]
     Active Substance: DIVALPROEX SODIUM
     Indication: BIPOLAR DISORDER
     Route: 048
     Dates: start: 20150324, end: 201504
  2. STELAZINE [Concomitant]
     Active Substance: TRIFLUOPERAZINE HYDROCHLORIDE
     Indication: ANXIOLYTIC THERAPY
     Route: 048
  3. DEPAKOTE [Suspect]
     Active Substance: DIVALPROEX SODIUM
     Indication: COMPULSIONS
  4. CITALOPRAM [Suspect]
     Active Substance: CITALOPRAM HYDROBROMIDE
     Indication: ANTIDEPRESSANT THERAPY
     Dosage: DAILY DOSE: 20 MILLIGRAM; DAILY
     Route: 048
     Dates: start: 2010
  5. DEPAKOTE [Suspect]
     Active Substance: DIVALPROEX SODIUM
     Indication: COMPULSIONS
  6. DEPAKOTE [Suspect]
     Active Substance: DIVALPROEX SODIUM
     Indication: BIPOLAR DISORDER
     Dosage: DAILY DOSE: 125 MG AT BED TIME
     Route: 048
     Dates: start: 201504, end: 201512
  7. RIVOTRIL [Suspect]
     Active Substance: CLONAZEPAM
     Indication: ANXIOLYTIC THERAPY
     Dosage: DAILY DOSE: 2 MG; 1 MG IN THE MORNING AND AT NIGHT
     Route: 048
  8. PREDNISONE. [Concomitant]
     Active Substance: PREDNISONE
     Indication: ADRENAL ATROPHY
     Route: 048
     Dates: start: 2007

REACTIONS (10)
  - Abdominal discomfort [Unknown]
  - Abdominal pain [Unknown]
  - Hypotension [Not Recovered/Not Resolved]
  - General physical health deterioration [Unknown]
  - Memory impairment [Not Recovered/Not Resolved]
  - Muscle spasms [Recovering/Resolving]
  - Chronic fatigue syndrome [Recovering/Resolving]
  - Bedridden [Unknown]
  - Urine output decreased [Not Recovered/Not Resolved]
  - Nausea [Recovering/Resolving]

NARRATIVE: CASE EVENT DATE: 2015
